FAERS Safety Report 10055259 (Version 1)
Quarter: 2014Q2

REPORT INFORMATION
  Report Type: Spontaneous
  Country: NL (occurrence: NL)
  Receive Date: 20140403
  Receipt Date: 20140403
  Transmission Date: 20141212
  Serious: Yes (Death)
  Sender: FDA-Public Use
  Company Number: NL-ROCHE-1372982

PATIENT
  Age: 75 Year
  Sex: Female

DRUGS (8)
  1. AVASTIN [Suspect]
     Indication: MACULAR DEGENERATION
     Dosage: OM DE 6 WEKEN 1 INTRAVITREALE INJECTIE?AVASTIN INFVLST CONC 25MG/ML FLACON  4ML
     Route: 047
     Dates: start: 20130415
  2. TRAMADOL [Concomitant]
     Dosage: 2DD1 ZONODIG
     Route: 048
  3. MOVICOLON [Concomitant]
     Dosage: 1DD0,5?DRUG MACROGOL/ZOUTEN PDR V DRANK (MOVICOLON+GENERIEK)
     Route: 048
  4. LOSARTAN [Concomitant]
     Dosage: 1DD1
     Route: 048
  5. METFORMIN HYDROCHLORIDE [Concomitant]
     Dosage: 3DD1
     Route: 048
  6. ALLOPURINOL [Concomitant]
     Dosage: 1DD1
     Route: 048
  7. SIMVASTATINE [Concomitant]
     Dosage: 1DD1
     Route: 048
  8. PARACETAMOL [Concomitant]
     Dosage: 4DD1
     Route: 048

REACTIONS (1)
  - Death [Fatal]
